FAERS Safety Report 7483999-9 (Version None)
Quarter: 2011Q2

REPORT INFORMATION
  Report Type: 
  Country: None (occurrence: None)
  Receive Date: 20110513
  Receipt Date: 20110513
  Transmission Date: 20111010
  Serious: Yes (Hospitalization)
  Sender: FDA-Public Use
  Company Number: None

PATIENT
  Age: 63 Year
  Sex: Male
  Weight: 142.5 kg

DRUGS (3)
  1. VICTOZA [Suspect]
     Indication: DIABETES MELLITUS
     Dates: start: 20110314, end: 20110507
  2. LISINOPRIL [Concomitant]
  3. NORVASC [Concomitant]

REACTIONS (1)
  - PANCREATITIS [None]
